FAERS Safety Report 9162973 (Version 1)
Quarter: 2013Q1

REPORT INFORMATION
  Report Type: Spontaneous
  Country: MX (occurrence: None)
  Receive Date: 20130227
  Receipt Date: 20130227
  Transmission Date: 20140127
  Serious: Yes (Disabling)
  Sender: FDA-Public Use
  Company Number: ENTC2013-0065

PATIENT
  Age: 62 Year
  Sex: Male

DRUGS (7)
  1. STALEVO [Suspect]
     Indication: PARKINSON^S DISEASE
     Dosage: (150/37.5/200 MG)
     Route: 048
     Dates: start: 201101
  2. RASAGILINE [Concomitant]
  3. AMANTADINE [Concomitant]
  4. BIPERIDENO HYDROCHLORIDE [Concomitant]
  5. SERTRALINE [Concomitant]
  6. CLONAZEPAM [Concomitant]
  7. CELEBREX [Concomitant]

REACTIONS (4)
  - Dysstasia [None]
  - Asthenia [None]
  - Impaired self-care [None]
  - Spinal pain [None]
